FAERS Safety Report 9350083 (Version 3)
Quarter: 2014Q1

REPORT INFORMATION
  Report Type: Report from Study
  Country: BR (occurrence: BR)
  Receive Date: 20130616
  Receipt Date: 20140202
  Transmission Date: 20141002
  Serious: Yes (Death, Hospitalization, Other)
  Sender: FDA-Public Use
  Company Number: BR-US-EMD SERONO, INC.-7216483

PATIENT
  Age: 72 Year
  Sex: Female

DRUGS (6)
  1. REBIF [Suspect]
     Indication: RELAPSING-REMITTING MULTIPLE SCLEROSIS
     Dates: start: 20040602
  2. DAONIL [Concomitant]
     Indication: PRODUCT USED FOR UNKNOWN INDICATION
  3. PANTOZOL                           /01263202/ [Concomitant]
     Indication: PRODUCT USED FOR UNKNOWN INDICATION
  4. AMLODIPINE [Concomitant]
     Indication: PRODUCT USED FOR UNKNOWN INDICATION
  5. ARADOIS [Concomitant]
     Indication: PRODUCT USED FOR UNKNOWN INDICATION
  6. GLUCOFORMIN                        /00082702/ [Concomitant]
     Indication: PRODUCT USED FOR UNKNOWN INDICATION

REACTIONS (12)
  - Bronchopneumonia [Fatal]
  - Sepsis [Fatal]
  - Enzyme level increased [Unknown]
  - Urinary tract infection [Unknown]
  - Knee arthroplasty [Unknown]
  - Muscular weakness [Unknown]
  - Hypokinesia [Unknown]
  - Insomnia [Not Recovered/Not Resolved]
  - Agitation [Unknown]
  - Increased upper airway secretion [Unknown]
  - Pain in extremity [Unknown]
  - Depression [Unknown]
